APPROVED DRUG PRODUCT: PREVYMIS
Active Ingredient: LETERMOVIR
Strength: 20MG/PACKET
Dosage Form/Route: PELLETS;ORAL
Application: N219104 | Product #001
Applicant: MERCK SHARP AND DOHME LLC
Approved: Aug 30, 2024 | RLD: Yes | RS: No | Type: RX

PATENTS:
Patent RE46791 | Expires: Jan 18, 2029

EXCLUSIVITY:
Code: NP | Date: Aug 30, 2027
Code: ODE* | Date: Jun 5, 2030
Code: ODE-495 | Date: Aug 30, 2031
Code: ODE-497 | Date: Aug 30, 2031